FAERS Safety Report 5726917-3 (Version None)
Quarter: 2008Q2

REPORT INFORMATION
  Report Type: 
  Country: None (occurrence: None)
  Receive Date: 20080502
  Receipt Date: 20080421
  Transmission Date: 20081010
  Serious: Yes (Other)
  Sender: FDA-Public Use
  Company Number: US-PFIZER INC-2008037293

PATIENT
  Sex: Male
  Weight: 76.363 kg

DRUGS (8)
  1. CHANTIX [Suspect]
     Indication: SMOKING CESSATION THERAPY
  2. DEPAKOTE [Concomitant]
  3. PREVACID [Concomitant]
  4. INDOMETHACIN [Concomitant]
  5. CYCLOBENZAPRINE HCL [Concomitant]
  6. TERAZOSIN HCL [Concomitant]
  7. ALBUTEROL [Concomitant]
  8. ADVAIR HFA [Concomitant]

REACTIONS (1)
  - DEPRESSION [None]
